FAERS Safety Report 18562930 (Version 1)
Quarter: 2020Q4

REPORT INFORMATION
  Report Type: Spontaneous
  Country: US (occurrence: US)
  Receive Date: 20201130
  Receipt Date: 20201130
  Transmission Date: 20210114
  Serious: No
  Sender: FDA-Public Use
  Company Number: US-ROCHE-2604149

PATIENT
  Sex: Female

DRUGS (8)
  1. METOPROLOL. [Concomitant]
     Active Substance: METOPROLOL
  2. LOSARTAN. [Concomitant]
     Active Substance: LOSARTAN
  3. DESONIDE. [Concomitant]
     Active Substance: DESONIDE
  4. LEVOTHYROXINE. [Concomitant]
     Active Substance: LEVOTHYROXINE
  5. LUCENTIS [Suspect]
     Active Substance: RANIBIZUMAB
     Indication: ESSENTIAL THROMBOCYTHAEMIA
     Route: 065
     Dates: start: 20160929
  6. XARELTO [Concomitant]
     Active Substance: RIVAROXABAN
  7. FLUOROURACIL. [Concomitant]
     Active Substance: FLUOROURACIL
  8. HYDROXYUREA. [Concomitant]
     Active Substance: HYDROXYUREA

REACTIONS (3)
  - Off label use [Unknown]
  - Eye pain [Unknown]
  - Intentional product use issue [Unknown]
